FAERS Safety Report 10043309 (Version 1)
Quarter: 2014Q1

REPORT INFORMATION
  Report Type: Spontaneous
  Country: US (occurrence: None)
  Receive Date: 20140327
  Receipt Date: 20140327
  Transmission Date: 20141002
  Serious: Yes (Other)
  Sender: FDA-Public Use
  Company Number: None

PATIENT
  Age: 57 Year
  Sex: Male
  Weight: 77.11 kg

DRUGS (1)
  1. METOPROLOL TARTRATE [Suspect]
     Indication: MITRAL VALVE REPAIR
     Route: 048
     Dates: start: 20140222, end: 20140308

REACTIONS (19)
  - Malaise [None]
  - Constipation [None]
  - Dizziness [None]
  - Dry mouth [None]
  - Flatulence [None]
  - Headache [None]
  - Dizziness [None]
  - Somnolence [None]
  - Myalgia [None]
  - Nausea [None]
  - Pain [None]
  - Abdominal pain upper [None]
  - Insomnia [None]
  - Asthenia [None]
  - Dysphonia [None]
  - Mood altered [None]
  - Mental status changes [None]
  - Depression [None]
  - Thinking abnormal [None]
